FAERS Safety Report 4305474-2 (Version None)
Quarter: 2004Q1

REPORT INFORMATION
  Report Type: 
  Country: None (occurrence: None)
  Receive Date: 20040226
  Receipt Date: 20030411
  Transmission Date: 20041129
  Serious: No
  Sender: FDA-Public Use
  Company Number: US-BRISTOL-MYERS SQUIBB COMPANY-12238929

PATIENT
  Age: 14 Year
  Sex: Female
  Weight: 73 kg

DRUGS (6)
  1. ABILIFY [Suspect]
     Indication: PSYCHOTIC DISORDER
     Route: 048
     Dates: start: 20030312
  2. ABILIFY [Suspect]
     Dosage: PAST 90 DAYS FROM 02-SEP-2003
     Route: 048
     Dates: start: 20030101
  3. CATAPRES [Concomitant]
     Dosage: PT TAKES ONE TABLET TID, ON FOR ^COUPLE OF YEARS^
  4. ZOLOFT [Concomitant]
     Dosage: ON MEDICATION FOR ^COUPLE OF YEARS^
  5. TOPAMAX [Concomitant]
     Dates: end: 20030410
  6. DEXEDRINE [Concomitant]
     Dates: end: 20030410

REACTIONS (5)
  - DRUG EFFECT DECREASED [None]
  - HALLUCINATION [None]
  - MORBID THOUGHTS [None]
  - PRESCRIBED OVERDOSE [None]
  - SOCIAL FEAR [None]
